FAERS Safety Report 5706598-5 (Version None)
Quarter: 2008Q2

REPORT INFORMATION
  Report Type: 
  Country: None (occurrence: None)
  Receive Date: 20080414
  Receipt Date: 20080403
  Transmission Date: 20081010
  Serious: Yes (Hospitalization)
  Sender: FDA-Public Use
  Company Number: SPV1-2008-00727

PATIENT
  Age: 12 Year
  Sex: Male
  Weight: 35.4 kg

DRUGS (10)
  1. ADDERALL XR 30 [Suspect]
     Indication: ATTENTION DEFICIT/HYPERACTIVITY DISORDER
     Dosage: 1X/DAY:QD, ORAL
     Route: 048
     Dates: end: 20070928
  2. ADDERALL XR 30 [Suspect]
     Indication: AUTISM SPECTRUM DISORDER
     Dosage: 1X/DAY:QD, ORAL
     Route: 048
     Dates: end: 20070928
  3. ADDERALL XR 30 [Suspect]
     Indication: OBSESSIVE-COMPULSIVE DISORDER
     Dosage: 1X/DAY:QD, ORAL
     Route: 048
     Dates: end: 20070928
  4. ADDERALL XR 30 [Suspect]
     Indication: OPPOSITIONAL DEFIANT DISORDER
     Dosage: 1X/DAY:QD, ORAL
     Route: 048
     Dates: end: 20070928
  5. ADDERALL XR 30 [Suspect]
     Indication: ATTENTION DEFICIT/HYPERACTIVITY DISORDER
     Dosage: 1X/DAY:QD, ORAL
     Route: 048
     Dates: start: 20071001, end: 20080101
  6. ADDERALL XR 30 [Suspect]
     Indication: AUTISM SPECTRUM DISORDER
     Dosage: 1X/DAY:QD, ORAL
     Route: 048
     Dates: start: 20071001, end: 20080101
  7. ADDERALL XR 30 [Suspect]
     Indication: OBSESSIVE-COMPULSIVE DISORDER
     Dosage: 1X/DAY:QD, ORAL
     Route: 048
     Dates: start: 20071001, end: 20080101
  8. ADDERALL XR 30 [Suspect]
     Indication: OPPOSITIONAL DEFIANT DISORDER
     Dosage: 1X/DAY:QD, ORAL
     Route: 048
     Dates: start: 20071001, end: 20080101
  9. VYVANSE [Concomitant]
  10. STRATTERA [Concomitant]

REACTIONS (14)
  - AFFECTIVE DISORDER [None]
  - AGGRESSION [None]
  - AGITATION [None]
  - ANGER [None]
  - ANOREXIA [None]
  - ANXIETY [None]
  - DEPRESSION [None]
  - DISTURBANCE IN SOCIAL BEHAVIOUR [None]
  - DRUG INEFFECTIVE [None]
  - DYSTHYMIC DISORDER [None]
  - OFF LABEL USE [None]
  - SCHOOL REFUSAL [None]
  - WEIGHT DECREASED [None]
  - WEIGHT INCREASED [None]
